FAERS Safety Report 15559839 (Version 2)
Quarter: 2018Q4

REPORT INFORMATION
  Report Type: Report from Study
  Country: PE (occurrence: PE)
  Receive Date: 20181029
  Receipt Date: 20181109
  Transmission Date: 20190205
  Serious: Yes (Death, Hospitalization, Disabling, Other)
  Sender: FDA-Public Use
  Company Number: PHHY2016PE173971

PATIENT
  Age: 59 Year
  Sex: Male

DRUGS (6)
  1. TASIGNA [Suspect]
     Active Substance: NILOTINIB
     Dosage: 400 MG, Q12H (ONE IN THE MORNING 200 MG AND THE OTHER ONE AT NIGHT)
     Route: 048
  2. TASIGNA [Suspect]
     Active Substance: NILOTINIB
     Dosage: 200 MG, BID
     Route: 048
  3. TASIGNA [Suspect]
     Active Substance: NILOTINIB
     Dosage: 400 MG, (1 CAPSULE OF 200 MG IN THE MORNING AND 200 MG IN THE AFTERNOON)
     Route: 048
     Dates: start: 20180105, end: 20180515
  4. TASIGNA [Suspect]
     Active Substance: NILOTINIB
     Dosage: 800 MG, BID (IN THE MORNING AND 2 IN THE AFTERNOON)
     Route: 048
     Dates: end: 20180517
  5. TASIGNA [Suspect]
     Active Substance: NILOTINIB
     Dosage: 400 MG, QD
     Route: 048
  6. TASIGNA [Suspect]
     Active Substance: NILOTINIB
     Indication: CHRONIC MYELOID LEUKAEMIA
     Dosage: 800 MG, BID
     Route: 048
     Dates: start: 20160301

REACTIONS (24)
  - Mouth haemorrhage [Not Recovered/Not Resolved]
  - Gait inability [Unknown]
  - Cytogenetic analysis abnormal [Not Recovered/Not Resolved]
  - Contusion [Unknown]
  - Type 2 diabetes mellitus [Unknown]
  - Discomfort [Unknown]
  - Pain [Unknown]
  - Pruritus [Unknown]
  - Drug ineffective [Not Recovered/Not Resolved]
  - Malignant neoplasm progression [Fatal]
  - Blindness unilateral [Not Recovered/Not Resolved]
  - Rash generalised [Unknown]
  - Chronic myeloid leukaemia [Fatal]
  - Pyrexia [Unknown]
  - Malaise [Unknown]
  - Mobility decreased [Not Recovered/Not Resolved]
  - Platelet count decreased [Not Recovered/Not Resolved]
  - Hepatic steatosis [Unknown]
  - Thrombocytopenia [Not Recovered/Not Resolved]
  - Haemoglobin decreased [Unknown]
  - Liver disorder [Unknown]
  - Abdominal discomfort [Unknown]
  - Hypoaesthesia [Not Recovered/Not Resolved]
  - Asthenia [Unknown]

NARRATIVE: CASE EVENT DATE: 20161011
